FAERS Safety Report 10043472 (Version 2)
Quarter: 2014Q3

REPORT INFORMATION
  Report Type: Spontaneous
  Country: US (occurrence: US)
  Receive Date: 20140328
  Receipt Date: 20140829
  Transmission Date: 20150326
  Serious: Yes (Other)
  Sender: FDA-Public Use
  Company Number: US-BAYER-2014-042699

PATIENT
  Age: 84 Year
  Sex: Female
  Weight: 50.79 kg

DRUGS (5)
  1. BAYER ADVANCED ASPIRIN EXTRA STRENGTH [Suspect]
     Active Substance: ASPIRIN
     Indication: ARTHRITIS
     Dosage: 1 DF, QD
     Route: 048
     Dates: start: 2013
  2. BAYER GENUINE ASPIRIN [Suspect]
     Active Substance: ASPIRIN
     Dosage: 2 DF, QD
     Route: 048
     Dates: end: 2013
  3. BAYER ADVANCED ASPIRIN EXTRA STRENGTH [Suspect]
     Active Substance: ASPIRIN
     Indication: FIBROMYALGIA
  4. METFORMIN [Concomitant]
     Active Substance: METFORMIN HYDROCHLORIDE
  5. DULOXETINE [Concomitant]
     Active Substance: DULOXETINE

REACTIONS (9)
  - Blood pressure systolic increased [Recovered/Resolved]
  - Intentional product misuse [None]
  - Epistaxis [Recovered/Resolved]
  - Drug ineffective [None]
  - Drug dependence [None]
  - Drug ineffective [None]
  - Therapeutic response changed [Recovered/Resolved]
  - Procedural haemorrhage [Recovered/Resolved]
  - Incorrect drug administration duration [None]

NARRATIVE: CASE EVENT DATE: 2013
